FAERS Safety Report 4479854-9 (Version None)
Quarter: 2004Q4

REPORT INFORMATION
  Report Type: 
  Country: None (occurrence: None)
  Receive Date: 20041018
  Receipt Date: 20041005
  Transmission Date: 20050328
  Serious: Yes (Death, Hospitalization)
  Sender: FDA-Public Use
  Company Number: 430001M04NOR

PATIENT
  Age: 71 Year
  Sex: Male

DRUGS (16)
  1. NOVANTRONE [Suspect]
     Indication: PROSTATE CANCER
     Dosage: 23 MG, 1 IN 1 CYCLE, UNKNOWN
     Dates: start: 20040105, end: 20040428
  2. DIAZEPAM [Concomitant]
  3. METOCLOPRAMIDE HYDROCHLORIDE [Concomitant]
  4. MORPHINE [Concomitant]
  5. EPINEPHRINE [Concomitant]
  6. DOPAMINE HYDROCHLORIDE [Concomitant]
  7. METOPROLOL TARTRATE [Concomitant]
  8. VERAPAMIL HYDROCHLORIDE [Concomitant]
  9. FUROSEMIDE [Concomitant]
  10. HEPARIN-FRACTION, SODIUM SALT [Concomitant]
  11. SOTALOL HYDROCHLORIDE [Concomitant]
  12. ACETYLSALICYLIC ACID [Concomitant]
  13. BICALUTAMIDE [Concomitant]
  14. GOSERELIN [Concomitant]
  15. ENALAPRIL MALEATE [Concomitant]
  16. PREDNISOLONE [Concomitant]

REACTIONS (18)
  - ATELECTASIS [None]
  - CARDIAC DISORDER [None]
  - CARDIAC FAILURE [None]
  - CARDIAC FLUTTER [None]
  - CARDIOMEGALY [None]
  - EMPHYSEMA [None]
  - HEART RATE INCREASED [None]
  - HEART RATE IRREGULAR [None]
  - HEPATIC STEATOSIS [None]
  - LUNG DISORDER [None]
  - MITRAL VALVE DISEASE [None]
  - MYOCARDIAL FIBROSIS [None]
  - OBSTRUCTION [None]
  - PERICARDITIS [None]
  - PLATELET COUNT DECREASED [None]
  - PLEURAL EFFUSION [None]
  - PROSTATIC SPECIFIC ANTIGEN ABNORMAL [None]
  - SPLEEN DISORDER [None]
